FAERS Safety Report 8087283-4 (Version None)
Quarter: 2012Q1

REPORT INFORMATION
  Report Type: 
  Country: None (occurrence: None)
  Receive Date: 20120128
  Receipt Date: 20110512
  Transmission Date: 20120608
  Serious: No
  Sender: FDA-Public Use
  Company Number: US-ABBOTT-11P-163-0725957-00

PATIENT
  Sex: Male
  Weight: 86.26 kg

DRUGS (5)
  1. NAPROXEN [Concomitant]
     Indication: ARTHRALGIA
  2. HUMIRA [Suspect]
     Indication: PSORIASIS
     Dates: start: 20110315
  3. METOPROLOL TARTRATE [Concomitant]
     Indication: CARDIAC DISORDER
  4. FEXOFENADINE [Concomitant]
     Indication: SEASONAL ALLERGY
     Dates: start: 20110301
  5. LOVASTATIN [Concomitant]
     Indication: BLOOD CHOLESTEROL INCREASED
     Dates: start: 20010101

REACTIONS (2)
  - JOINT STIFFNESS [None]
  - OEDEMA PERIPHERAL [None]
